FAERS Safety Report 7801461-8 (Version None)
Quarter: 2011Q4

REPORT INFORMATION
  Report Type: 
  Country: None (occurrence: None)
  Receive Date: 20111005
  Receipt Date: 20110921
  Transmission Date: 20120403
  Serious: Yes (Hospitalization)
  Sender: FDA-Public Use
  Company Number: DAV-AE-MTX-11-049

PATIENT
  Sex: Female

DRUGS (14)
  1. ACETAYLSALICILIC ACID [Concomitant]
  2. METHOTREXATE [Suspect]
     Indication: RHEUMATOID ARTHRITIS
     Dosage: ORALLY
     Route: 048
     Dates: start: 20110412, end: 20110510
  3. CARVEDILOL [Concomitant]
  4. FOLIC ACID [Concomitant]
  5. SIMVASTATIN [Concomitant]
  6. OLMESARTAN MEDOXOMIL [Concomitant]
  7. ZOLPIDEM [Concomitant]
  8. METFORMIN HYDROCHLORIDE [Concomitant]
  9. CEREBREX [Concomitant]
  10. ADALIMUMAB [Concomitant]
  11. CALCIUM CARBONATE [Concomitant]
  12. HYDROCHLOROTHIAZIDE [Concomitant]
  13. MIRTAZAPINE [Concomitant]
  14. OMEPRAZOLE [Concomitant]

REACTIONS (1)
  - DEEP VEIN THROMBOSIS [None]
